FAERS Safety Report 9074841 (Version 1)
Quarter: 2013Q1

REPORT INFORMATION
  Report Type: Report from Study
  Country: US (occurrence: US)
  Receive Date: 20130129
  Receipt Date: 20130129
  Transmission Date: 20140127
  Serious: No
  Sender: FDA-Public Use
  Company Number: US-ABBOTT-12P-163-0940297-00

PATIENT
  Age: 42 Year
  Sex: Female

DRUGS (8)
  1. HUMIRA 40 MG/0.8 ML PEN [Suspect]
     Indication: VASCULITIS
     Dosage: LOADING DOSE
     Dates: start: 20120510, end: 20120510
  2. HUMIRA 40 MG/0.8 ML PEN [Suspect]
     Indication: COLITIS
     Dosage: LOADING DOSE
     Dates: start: 20120525
  3. HUMIRA 40 MG/0.8 ML PEN [Suspect]
     Indication: POUCHITIS
  4. DILAUDID [Concomitant]
     Indication: PRODUCT USED FOR UNKNOWN INDICATION
     Dosage: 2-6 TIMES A DAY
  5. PROVIGIL [Concomitant]
     Indication: PRODUCT USED FOR UNKNOWN INDICATION
  6. GRALISE [Concomitant]
     Indication: PAIN
     Dosage: 600MG DAILY
  7. PREDNISONE [Concomitant]
     Indication: PRODUCT USED FOR UNKNOWN INDICATION
     Dosage: SLOWLY TAPERING DOSE
  8. BACTRIM [Concomitant]
     Indication: ANTIBIOTIC PROPHYLAXIS

REACTIONS (1)
  - Injection site pain [Recovered/Resolved]
